FAERS Safety Report 19520662 (Version 1)
Quarter: 2021Q3

REPORT INFORMATION
  Report Type: Spontaneous
  Country: US (occurrence: US)
  Receive Date: 20210712
  Receipt Date: 20210712
  Transmission Date: 20211014
  Serious: No
  Sender: FDA-Public Use
  Company Number: US-BAYER-2021-172958

PATIENT

DRUGS (3)
  1. MIRALAX [Suspect]
     Active Substance: POLYETHYLENE GLYCOL 3350
     Indication: CONSTIPATION PROPHYLAXIS
     Dosage: 2 TEASPOON
     Route: 048
     Dates: start: 20210707, end: 20210707
  2. MIRALAX [Suspect]
     Active Substance: POLYETHYLENE GLYCOL 3350
     Indication: CONSTIPATION PROPHYLAXIS
     Dosage: 1 TEASPOON
     Route: 048
     Dates: start: 20210708, end: 20210708
  3. MIRALAX [Suspect]
     Active Substance: POLYETHYLENE GLYCOL 3350
     Indication: CONSTIPATION PROPHYLAXIS
     Dosage: 1 TEASPOON
     Route: 048
     Dates: start: 20210705, end: 20210706

REACTIONS (4)
  - Faecal volume decreased [Unknown]
  - Faeces hard [Unknown]
  - Diarrhoea [Unknown]
  - Product use in unapproved indication [None]

NARRATIVE: CASE EVENT DATE: 20210705
